FAERS Safety Report 7426729-9 (Version None)
Quarter: 2011Q2

REPORT INFORMATION
  Report Type: 
  Country: None (occurrence: None)
  Receive Date: 20110420
  Receipt Date: 20110413
  Transmission Date: 20111010
  Serious: Yes (Hospitalization, Other)
  Sender: FDA-Public Use
  Company Number: US-ELI_LILLY_AND_COMPANY-US201104004205

PATIENT
  Age: 71 Year
  Sex: Male

DRUGS (10)
  1. LEVOTHYROXINE SODIUM [Concomitant]
     Dosage: 0.125 MG, QD
  2. ATENOLOL [Concomitant]
     Dosage: 25 MG, QD
  3. TRIAMTERENE AND HYDROCHLOROTHIAZIDE [Concomitant]
     Dosage: 25MG/37.5MG, QD
  4. EFFIENT [Suspect]
     Indication: STENT PLACEMENT
     Dosage: 60 MG, LOADING DOSE
     Dates: start: 20101215
  5. LISINOPRIL [Concomitant]
     Dosage: 10 MG, UNK
  6. METFORMIN [Concomitant]
     Dosage: 500 MG, UNK
  7. EFFIENT [Suspect]
     Dosage: 10 MG, QD
     Dates: end: 20110328
  8. ASPIRIN [Concomitant]
     Dosage: 325 MG, UNK
     Dates: start: 20101215
  9. CRESTOR [Concomitant]
     Dosage: 40 MG, QD
  10. FINASTERID [Concomitant]
     Dosage: 5 MG, QD

REACTIONS (1)
  - IN-STENT CORONARY ARTERY RESTENOSIS [None]
